FAERS Safety Report 7893199-6 (Version None)
Quarter: 2011Q4

REPORT INFORMATION
  Report Type: 
  Country: None (occurrence: None)
  Receive Date: 20111104
  Receipt Date: 20111021
  Transmission Date: 20120403
  Serious: Yes (Other)
  Sender: FDA-Public Use
  Company Number: PHEH2011US07572

PATIENT
  Sex: Female

DRUGS (9)
  1. VITAMIN B-12 [Concomitant]
  2. ASPIRIN [Concomitant]
     Dosage: 81 MG, UNK
  3. SERTRALINE HYDROCHLORIDE [Concomitant]
     Dosage: 50 MG, UNK
  4. DIOVAN [Suspect]
     Indication: DEPRESSION
     Dosage: 320 MG, QD
     Route: 048
  5. DIOVAN [Suspect]
     Dosage: 0.5 DF
     Route: 048
  6. VITAMIN D [Concomitant]
  7. DIOVAN HCT [Concomitant]
     Indication: DEPRESSION
     Dosage: 160 MG OF VALS AND 12.5 MG OF HYD ONCE DAY
     Route: 048
  8. METOPROLOL TARTRATE [Concomitant]
  9. LEVOXYL [Concomitant]
     Indication: THYROID DISORDER

REACTIONS (6)
  - WRONG TECHNIQUE IN DRUG USAGE PROCESS [None]
  - LOSS OF CONSCIOUSNESS [None]
  - DEPRESSION [None]
  - DRUG INTOLERANCE [None]
  - FALL [None]
  - DIZZINESS [None]
